FAERS Safety Report 17973255 (Version 1)
Quarter: 2020Q3

REPORT INFORMATION
  Report Type: Spontaneous
  Country: US (occurrence: US)
  Receive Date: 20200701
  Receipt Date: 20200701
  Transmission Date: 20201103
  Serious: Yes (Hospitalization)
  Sender: FDA-Public Use
  Company Number: None

PATIENT
  Sex: Female

DRUGS (1)
  1. EXJADE [Suspect]
     Active Substance: DEFERASIROX
     Indication: HAEMOCHROMATOSIS
     Dosage: ?          OTHER FREQUENCY:EVERY MORNING;?
     Route: 048
     Dates: start: 20190426

REACTIONS (3)
  - Therapy interrupted [None]
  - Full blood count decreased [None]
  - Ovarian cyst [None]
